FAERS Safety Report 11859755 (Version 6)
Quarter: 2018Q2

REPORT INFORMATION
  Report Type: Report from Study
  Country: JP (occurrence: JP)
  Receive Date: 20151222
  Receipt Date: 20180507
  Transmission Date: 20180711
  Serious: Yes (Hospitalization, Other)
  Sender: FDA-Public Use
  Company Number: PHHO2014JP020874

PATIENT
  Age: 52 Year
  Sex: Male
  Weight: 85.8 kg

DRUGS (22)
  1. ARZERRA [Suspect]
     Active Substance: OFATUMUMAB
     Dosage: 1000 MG, CYCLIC
     Route: 042
     Dates: start: 20131030, end: 20131030
  2. ARZERRA [Suspect]
     Active Substance: OFATUMUMAB
     Dosage: 1000 MG, CYCLIC
     Route: 042
     Dates: start: 20131125, end: 20131125
  3. ARZERRA [Suspect]
     Active Substance: OFATUMUMAB
     Dosage: 1000 MG, CYC
     Route: 042
     Dates: start: 20131217, end: 20131217
  4. ONCOVIN [Concomitant]
     Active Substance: VINCRISTINE SULFATE
     Indication: NON-HODGKIN^S LYMPHOMA
     Dosage: 2 MG, UNK
     Route: 065
     Dates: start: 20121031, end: 20121220
  5. GLIMICRON [Concomitant]
     Active Substance: GLICLAZIDE
     Indication: DIABETES MELLITUS
     Dosage: 20 MG, QD
     Route: 048
     Dates: start: 20140606
  6. ARZERRA [Suspect]
     Active Substance: OFATUMUMAB
     Dosage: 1000 MG, CYCLIC
     Route: 042
     Dates: start: 20140326, end: 20140326
  7. T_BENDAMUSTINE [Suspect]
     Active Substance: BENDAMUSTINE
     Dosage: 90 MG/M2, CYC
     Route: 042
     Dates: start: 20131030, end: 20131031
  8. T_BENDAMUSTINE [Suspect]
     Active Substance: BENDAMUSTINE
     Dosage: 90 MG/M2, CYC
     Route: 042
     Dates: start: 20131125, end: 20131126
  9. ARZERRA [Suspect]
     Active Substance: OFATUMUMAB
     Dosage: 1000 MG, CYCLIC
     Route: 042
     Dates: start: 20140219, end: 20140219
  10. T_BENDAMUSTINE [Suspect]
     Active Substance: BENDAMUSTINE
     Dosage: 90 MG/M2, CYC
     Route: 042
     Dates: start: 20131217, end: 20131218
  11. ENDOXAN [Concomitant]
     Active Substance: CYCLOPHOSPHAMIDE
     Indication: NON-HODGKIN^S LYMPHOMA
     Dosage: 1300 MG, UNK
     Route: 065
     Dates: start: 20121031, end: 20121220
  12. ARZERRA [Suspect]
     Active Substance: OFATUMUMAB
     Indication: B-CELL LYMPHOMA
     Dosage: 1000 MG, CYCLIC
     Route: 042
     Dates: start: 20131009, end: 20131010
  13. ARZERRA [Suspect]
     Active Substance: OFATUMUMAB
     Dosage: 1000 MG, CYCLIC
     Route: 042
     Dates: start: 20140129, end: 20140129
  14. T_BENDAMUSTINE [Suspect]
     Active Substance: BENDAMUSTINE
     Indication: B-CELL LYMPHOMA
     Dosage: 90 MG/M2, CYC
     Route: 042
     Dates: start: 20131010, end: 20131011
  15. ADRIACIN [Concomitant]
     Active Substance: DOXORUBICIN HYDROCHLORIDE
     Indication: NON-HODGKIN^S LYMPHOMA
     Dosage: 85 MG, UNK
     Route: 065
     Dates: start: 20121031, end: 20121220
  16. ARZERRA [Suspect]
     Active Substance: OFATUMUMAB
     Dosage: 1000 MG, CYCLIC
     Route: 042
     Dates: start: 20140108, end: 20140108
  17. T_BENDAMUSTINE [Suspect]
     Active Substance: BENDAMUSTINE
     Dosage: 90 MG/M2, CYC
     Route: 042
     Dates: start: 20140108, end: 20140109
  18. T_BENDAMUSTINE [Suspect]
     Active Substance: BENDAMUSTINE
     Dosage: 90 MG/M2, CYC
     Route: 042
     Dates: start: 20140219, end: 20140220
  19. ARZERRA [Suspect]
     Active Substance: OFATUMUMAB
     Dosage: 1000 MG, CYCLIC
     Route: 042
     Dates: start: 20140423, end: 20140423
  20. T_BENDAMUSTINE [Suspect]
     Active Substance: BENDAMUSTINE
     Dosage: 90 MG/M2, CYC
     Route: 042
     Dates: start: 20140129, end: 20140130
  21. ARZERRA [Suspect]
     Active Substance: OFATUMUMAB
     Dosage: 1000 MG, CYCLIC
     Route: 042
     Dates: start: 20140528, end: 20140528
  22. PREDONINE [Concomitant]
     Active Substance: PREDNISOLONE
     Indication: NON-HODGKIN^S LYMPHOMA
     Dosage: 100 MG, UNK
     Route: 065
     Dates: start: 20121031, end: 20121224

REACTIONS (1)
  - Cytomegalovirus chorioretinitis [Recovering/Resolving]

NARRATIVE: CASE EVENT DATE: 20140604
